FAERS Safety Report 10010966 (Version 1)
Quarter: 2014Q1

REPORT INFORMATION
  Report Type: Spontaneous
  Country: US (occurrence: US)
  Receive Date: 20140314
  Receipt Date: 20140314
  Transmission Date: 20141002
  Serious: No
  Sender: FDA-Public Use
  Company Number: US-009507513-1403USA003275

PATIENT
  Age: 74 Year
  Sex: Female

DRUGS (2)
  1. JANUMET XR [Suspect]
     Indication: DIABETES MELLITUS
     Dosage: TOTAL DAILY DOSE: 100/1000 MG, ONCE DAILY AT DINNER
     Route: 048
     Dates: start: 201312
  2. METFORMIN [Concomitant]
     Dosage: 500 MG, ONCE AT NIGHT
     Route: 048

REACTIONS (1)
  - Blood glucose increased [Recovered/Resolved]
